FAERS Safety Report 9051491 (Version 1)
Quarter: 2013Q1

REPORT INFORMATION
  Report Type: Spontaneous
  Country: US (occurrence: US)
  Receive Date: 20130206
  Receipt Date: 20130206
  Transmission Date: 20140127
  Serious: No
  Sender: FDA-Public Use
  Company Number: US-ALLERGAN-1215984US

PATIENT
  Age: 43 Year
  Sex: Female

DRUGS (6)
  1. RESTASIS [Suspect]
     Indication: DRY EYE
     Dosage: 2 GTT, BID
     Route: 047
     Dates: start: 201209
  2. RESTASIS [Suspect]
     Dosage: UNK
     Route: 047
     Dates: start: 2011
  3. ARTIFICIAL TEARS [Suspect]
     Indication: PRODUCT USED FOR UNKNOWN INDICATION
  4. LISINOPRIL [Concomitant]
     Indication: HYPERTENSION
     Dosage: UNK
  5. UNSPECIFIED BIRTH CONTROL PILL [Concomitant]
     Indication: CONTRACEPTION
     Dosage: UNK
  6. VALACICLOVIR [Concomitant]
     Indication: HERPES SIMPLEX
     Dosage: UNK UNK, PRN

REACTIONS (5)
  - Eye irritation [Unknown]
  - Eyelid oedema [Unknown]
  - Photophobia [Unknown]
  - Lacrimation increased [Unknown]
  - Eye irritation [Unknown]
